FAERS Safety Report 9306108 (Version 1)
Quarter: 2013Q2

REPORT INFORMATION
  Report Type: Spontaneous
  Country: US (occurrence: US)
  Receive Date: 20130523
  Receipt Date: 20130523
  Transmission Date: 20140414
  Serious: Yes (Other)
  Sender: FDA-Public Use
  Company Number: US-ROCHE-1046956

PATIENT
  Sex: Female
  Weight: 70.37 kg

DRUGS (2)
  1. ACCUTANE [Suspect]
     Indication: ACNE
     Route: 065
     Dates: start: 1995
  2. ACCUTANE [Suspect]
     Route: 065
     Dates: start: 2001, end: 2002

REACTIONS (2)
  - Colitis ulcerative [Unknown]
  - Deep vein thrombosis [Unknown]
